FAERS Safety Report 8791903 (Version 1)
Quarter: 2012Q4

REPORT INFORMATION
  Report Type: 
  Country: GB (occurrence: GB)
  Receive Date: 20120918
  Receipt Date: 20120918
  Transmission Date: 20130627
  Serious: Yes (Other)
  Sender: FDA-Public Use
  Company Number: GB-UCBSA-063907

PATIENT
  Age: 65 Year
  Sex: Female
  Weight: 55 kg

DRUGS (8)
  1. KEPPRA [Suspect]
     Indication: EPILEPSY
     Dosage: 250 MG AM AND 750 MG (250+500) PM
     Route: 048
     Dates: start: 20030901
  2. TEGRETOL RETARD [Concomitant]
     Dosage: 200 MG 1 AND A HALF A DAY
  3. EPILIM CHRONO [Concomitant]
     Dosage: 500 MG 3 TAB +300 MG 1 TAB AT NIGHT
  4. MOMETASONE FUROATE [Concomitant]
     Dosage: 50 MICROGRAMS/DOSE
     Route: 045
  5. NITRAZEPAM [Concomitant]
     Dosage: AT NIGHT
  6. SODIUM CROMOGLICATE [Concomitant]
     Dosage: 4% AS DIRECTED
     Route: 045
  7. ACETAZOLAMIDE [Concomitant]
     Dosage: 250 MG,1 TO BE TAKEN TWICE DAILY WHEN NECESSARY
  8. VAGIFEM [Concomitant]
     Route: 067

REACTIONS (3)
  - Pain in extremity [Not Recovered/Not Resolved]
  - Depression [Unknown]
  - Neuralgia [Unknown]
